FAERS Safety Report 4970716-7 (Version None)
Quarter: 2006Q2

REPORT INFORMATION
  Report Type: 
  Country: None (occurrence: None)
  Receive Date: 20060411
  Receipt Date: 20060411
  Transmission Date: 20061013
  Serious: Yes (Hospitalization)
  Sender: FDA-Public Use
  Company Number: None

PATIENT
  Age: 74 Year
  Sex: Male
  Weight: 119.7 kg

DRUGS (2)
  1. ATENOLOL [Suspect]
     Indication: HYPERTENSION
     Dosage: 500 MG , 50 MG QD , ORAL
     Route: 048
     Dates: start: 20041129, end: 20060316
  2. FELODIPINE [Suspect]
     Indication: HYPERTENSION
     Dosage: 20 MG, 20 MG  QD , ORAL
     Route: 048
     Dates: start: 20041129, end: 20060316

REACTIONS (2)
  - BRADYCARDIA [None]
  - NODAL RHYTHM [None]
